FAERS Safety Report 23415296 (Version 1)
Quarter: 2024Q1

REPORT INFORMATION
  Report Type: Spontaneous
  Country: US (occurrence: US)
  Receive Date: 20240118
  Receipt Date: 20240118
  Transmission Date: 20240410
  Serious: Yes (Hospitalization)
  Sender: FDA-Public Use
  Company Number: US-ALVOGEN-2024092860

PATIENT
  Age: 52 Year
  Sex: Male

DRUGS (2)
  1. FENTANYL [Suspect]
     Active Substance: FENTANYL\FENTANYL CITRATE
     Indication: Pain management
     Dosage: 75 MCG/HR EVERY 3 DAYS ?LAST DATE OF ADMINISTRATION: UNSURE OF THE DATE, 28-NOV-2023.
  2. OXYCODONE [Suspect]
     Active Substance: OXYCODONE
     Indication: Pain management

REACTIONS (5)
  - Heart rate irregular [Unknown]
  - Malaise [Unknown]
  - Product use issue [Unknown]
  - Therapy interrupted [Unknown]
  - Product availability issue [Unknown]

NARRATIVE: CASE EVENT DATE: 20230301
